FAERS Safety Report 9181118 (Version 2)
Quarter: 2013Q1

REPORT INFORMATION
  Report Type: Spontaneous
  Country: US (occurrence: US)
  Receive Date: 20130322
  Receipt Date: 20130322
  Transmission Date: 20140127
  Serious: No
  Sender: FDA-Public Use
  Company Number: US-MYLANLABS-2012S1006602

PATIENT
  Age: 58 Year
  Sex: Female

DRUGS (21)
  1. EMSAM [Suspect]
     Indication: DEPRESSION
     Dosage: CHANGES EVERY DAY
     Route: 062
     Dates: start: 2007
  2. ABILIFY [Concomitant]
     Indication: DEPRESSION
  3. ASPIRIN [Concomitant]
     Indication: PROPHYLAXIS
  4. CALCIUM CARBONATE [Concomitant]
  5. DEXILANT [Concomitant]
     Indication: GASTRIC DISORDER
  6. EVISTA [Concomitant]
     Indication: OSTEOPENIA
  7. FISH OIL [Concomitant]
  8. FLOVENT [Concomitant]
     Indication: ASTHMA
     Route: 055
  9. FUROSEMIDE [Concomitant]
     Indication: POLYURIA
  10. HUMALOG [Concomitant]
     Indication: TYPE 1 DIABETES MELLITUS
     Dosage: PUMP
  11. IPRATROPIUM [Concomitant]
     Indication: RHINITIS
  12. LAMICTAL [Concomitant]
     Indication: DEPRESSION
  13. LANTUS [Concomitant]
     Indication: TYPE 1 DIABETES MELLITUS
     Dosage: IF PUMP FAILS
  14. METOPROLOL [Concomitant]
     Indication: BLOOD PRESSURE
  15. MULTIVITAMIN [Concomitant]
  16. PROCRIT [Concomitant]
     Indication: BLOOD ERYTHROPOIETIN DECREASED
  17. RAMIPRIL [Concomitant]
     Dosage: KIDNEY PROTECTION
  18. SIMVASTATIN [Concomitant]
     Indication: BLOOD CHOLESTEROL
  19. SYMLINPEN [Concomitant]
     Indication: BLOOD GLUCOSE
     Dosage: AT DINNER PRN
  20. SYNTHROID [Concomitant]
     Indication: HYPOTHYROIDISM
  21. VITAMIN D [Concomitant]

REACTIONS (5)
  - Application site erythema [Not Recovered/Not Resolved]
  - Application site pruritus [Recovered/Resolved]
  - Application site urticaria [Recovered/Resolved]
  - Application site discolouration [Not Recovered/Not Resolved]
  - Product adhesion issue [None]
